FAERS Safety Report 12701484 (Version 1)
Quarter: 2016Q3

REPORT INFORMATION
  Report Type: Spontaneous
  Country: US (occurrence: US)
  Receive Date: 20160831
  Receipt Date: 20160831
  Transmission Date: 20161109
  Serious: No
  Sender: FDA-Public Use
  Company Number: US-PFIZER INC-2016400564

PATIENT

DRUGS (2)
  1. LIPITOR [Suspect]
     Active Substance: ATORVASTATIN CALCIUM
     Dosage: UNK UNK, 1X/DAY (EVERY NIGHT)
  2. DIOVAN [Concomitant]
     Active Substance: VALSARTAN
     Dosage: UNK UNK, 1X/DAY (EVERY NIGHT)

REACTIONS (2)
  - Headache [Unknown]
  - Pain [Unknown]
